FAERS Safety Report 24244791 (Version 2)
Quarter: 2024Q3

REPORT INFORMATION
  Report Type: Spontaneous
  Country: US (occurrence: US)
  Receive Date: 20240823
  Receipt Date: 20240828
  Transmission Date: 20241016
  Serious: No
  Sender: KYOWA
  Company Number: US-KYOWAKIRIN-2024KK019746

PATIENT

DRUGS (4)
  1. CRYSVITA [Suspect]
     Active Substance: BUROSUMAB-TWZA
     Indication: Hereditary hypophosphataemic rickets
     Dosage: 30 MG, 1X/2 WEEKS, INJECT 1 ML (30 MG TOTAL) UNDER THE SKIN INTO FAT TISSUE
     Route: 058
  2. CRYSVITA [Suspect]
     Active Substance: BUROSUMAB-TWZA
     Dosage: 30 MG, 1X/2 WEEKS (1 ML (30 MG TOTAL) UNDER THE SKIN)
     Route: 058
  3. CRYSVITA [Suspect]
     Active Substance: BUROSUMAB-TWZA
     Dosage: 30 MG, 1X/2 WEEKS (1 ML (30 MG TOTAL) UNDER THE SKIN)
     Route: 058
     Dates: start: 20240823
  4. LIDOCAINE AND PRILOCAINE [Concomitant]
     Active Substance: LIDOCAINE\PRILOCAINE
     Indication: Product used for unknown indication
     Dosage: UNK
     Route: 065

REACTIONS (3)
  - Pyrexia [Recovered/Resolved]
  - Pharyngitis streptococcal [Unknown]
  - Rash erythematous [Unknown]

NARRATIVE: CASE EVENT DATE: 20240801
